FAERS Safety Report 9385223 (Version 2)
Quarter: 2013Q3

REPORT INFORMATION
  Report Type: Spontaneous
  Country: US (occurrence: US)
  Receive Date: 20130705
  Receipt Date: 20130808
  Transmission Date: 20140515
  Serious: Yes (Hospitalization)
  Sender: FDA-Public Use
  Company Number: US-B.I. PHARMACEUTICALS,INC./RIDGEFIELD-2013-BI-18619BP

PATIENT
  Age: 57 Year
  Sex: Female
  Weight: 89 kg

DRUGS (9)
  1. COMBIVENT [Suspect]
     Indication: CHRONIC OBSTRUCTIVE PULMONARY DISEASE
     Dosage: STRENGTH: 20 MCG / 100 MCG; DAILY DOSE: 20 MCG / 100 MCG
     Route: 055
     Dates: start: 20130622, end: 20130622
  2. COMBIVENT [Suspect]
     Dosage: 4 PUF
     Dates: start: 20130522, end: 20130522
  3. ENALAPRIL [Concomitant]
     Indication: HYPERTENSION
  4. PERCOCET [Concomitant]
     Indication: ARTHRALGIA
  5. SINGULAIR [Concomitant]
     Indication: ASTHMA
  6. PLAVIX [Concomitant]
     Indication: TRANSIENT ISCHAEMIC ATTACK
  7. LISPRO [Concomitant]
     Indication: DIABETES MELLITUS
  8. COMBIVENT MDI [Concomitant]
     Indication: CHRONIC OBSTRUCTIVE PULMONARY DISEASE
     Dosage: FORMULATION: INHALATION AEROSOL
     Dates: end: 20130621
  9. ZANTAC [Concomitant]
     Indication: HIATUS HERNIA

REACTIONS (5)
  - Wheezing [Recovered/Resolved]
  - Hypersensitivity [Recovered/Resolved]
  - Chronic obstructive pulmonary disease [Not Recovered/Not Resolved]
  - Wrong drug administered [Recovered/Resolved]
  - Pruritus [Not Recovered/Not Resolved]
